FAERS Safety Report 9925624 (Version 2)
Quarter: 2014Q1

REPORT INFORMATION
  Report Type: Spontaneous
  Country: US (occurrence: US)
  Receive Date: 20140226
  Receipt Date: 20140305
  Transmission Date: 20141002
  Serious: Yes (Life-Threatening, Other)
  Sender: FDA-Public Use
  Company Number: US-GLAXOSMITHKLINE-A1061355A

PATIENT
  Age: 26 Year
  Sex: Female

DRUGS (3)
  1. LAMICTAL [Suspect]
     Indication: BIPOLAR DISORDER
     Dosage: 100MG TWICE PER DAY
     Route: 048
     Dates: start: 201206, end: 20140214
  2. SEROQUEL [Concomitant]
  3. LITHIUM [Concomitant]

REACTIONS (5)
  - Rash [Recovering/Resolving]
  - Swelling face [Recovering/Resolving]
  - Wheezing [Recovering/Resolving]
  - Urticaria [Unknown]
  - Acarodermatitis [Recovering/Resolving]
